FAERS Safety Report 6966246-3 (Version None)
Quarter: 2010Q3

REPORT INFORMATION
  Report Type: 
  Country: None (occurrence: None)
  Receive Date: 20100903
  Receipt Date: 20100827
  Transmission Date: 20110219
  Serious: Yes (Hospitalization)
  Sender: FDA-Public Use
  Company Number: US-GENENTECH-241168

PATIENT
  Sex: Female

DRUGS (26)
  1. OMALIZUMAB [Suspect]
     Indication: ASTHMA
     Dosage: 225 MG, Q2W
     Route: 065
     Dates: start: 20031028, end: 20070724
  2. OMALIZUMAB [Suspect]
     Dosage: 225 MG, Q2W
     Route: 065
     Dates: start: 20071102, end: 20081209
  3. SOLU-MEDROL [Suspect]
     Indication: ASTHMA
     Dosage: 50 MG, TID
     Route: 030
     Dates: start: 20070908, end: 20070909
  4. ACETAMINOPHEN [Concomitant]
     Indication: SINUS HEADACHE
  5. ALLERGY SHOTS [Concomitant]
     Indication: HYPERSENSITIVITY
  6. SINGULAIR [Concomitant]
     Indication: ASTHMA
  7. ZYFLO [Concomitant]
     Indication: ASTHMA
  8. XOPENEX [Concomitant]
     Indication: ASTHMA
  9. ALLEGRA [Concomitant]
     Indication: HYPERSENSITIVITY
  10. PULMICORT [Concomitant]
     Indication: ASTHMA
  11. METHYLPREDNISOLONE [Concomitant]
     Indication: ASTHMA
  12. SUDAFED 12 HOUR [Concomitant]
     Indication: HYPERSENSITIVITY
  13. BENADRYL [Concomitant]
     Indication: HYPERSENSITIVITY
  14. ADVAIR DISKUS 100/50 [Concomitant]
     Indication: ASTHMA
  15. PRENATAL VITAMINS [Concomitant]
     Indication: PREGNANCY
  16. LEVAQUIN [Concomitant]
     Indication: INFECTION
  17. PERCOCET [Concomitant]
     Indication: INCISION SITE PAIN
  18. MOTRIN [Concomitant]
     Indication: INCISION SITE PAIN
  19. GAMUNEX [Concomitant]
     Indication: BLOOD IMMUNOGLOBULIN G DECREASED
  20. RHINOCORT [Concomitant]
     Indication: HYPERSENSITIVITY
     Dosage: UNK
  21. ALBUTEROL [Concomitant]
     Indication: ASTHMA
     Dosage: UNK
  22. NASONEX [Concomitant]
     Indication: HYPERSENSITIVITY
     Dosage: UNK
  23. PRILOSEC [Concomitant]
     Indication: DYSPEPSIA
     Dosage: UNK
  24. AVELOX [Concomitant]
     Indication: INFECTION
  25. IMMUNE GLOBULIN NOS [Concomitant]
     Indication: IMMUNOGLOBULINS DECREASED
     Dosage: UNK
  26. SULFAMETHOXAZOLE AND TRIMETHOPRIM [Concomitant]
     Indication: PROPHYLAXIS
     Dosage: UNK

REACTIONS (2)
  - DRUG EXPOSURE DURING PREGNANCY [None]
  - FAILED INDUCTION OF LABOUR [None]
